FAERS Safety Report 6709453-7 (Version None)
Quarter: 2010Q2

REPORT INFORMATION
  Report Type: 
  Country: None (occurrence: None)
  Receive Date: 20100428
  Receipt Date: 20100406
  Transmission Date: 20101027
  Serious: No
  Sender: FDA-Public Use
  Company Number: 2010-00369

PATIENT
  Age: 55 Year
  Sex: Female
  Weight: 80.7403 kg

DRUGS (5)
  1. ZICAM COLD REMEDY GEL SWABS [Suspect]
     Dosage: SPORADIC USE - SPORADIC : YEARS AGO-YEARS AGO
  2. TOPROL-XL [Concomitant]
  3. BENICAR [Concomitant]
  4. PREVACID [Concomitant]
  5. ACTONEL [Concomitant]

REACTIONS (1)
  - ANOSMIA [None]
